FAERS Safety Report 9695323 (Version 1)
Quarter: 2013Q4

REPORT INFORMATION
  Report Type: Spontaneous
  Country: AU (occurrence: AU)
  Receive Date: 20131119
  Receipt Date: 20131119
  Transmission Date: 20140711
  Serious: Yes (Other)
  Sender: FDA-Public Use
  Company Number: AU-ABBVIE-13P-008-1157766-00

PATIENT
  Sex: Female

DRUGS (3)
  1. EPILIM [Suspect]
     Indication: PRODUCT USED FOR UNKNOWN INDICATION
  2. FRISIUM [Suspect]
     Indication: PRODUCT USED FOR UNKNOWN INDICATION
  3. TRILEPTAL [Suspect]
     Indication: PRODUCT USED FOR UNKNOWN INDICATION

REACTIONS (3)
  - Convulsion [Unknown]
  - Developmental delay [Unknown]
  - Drug ineffective [Unknown]
